FAERS Safety Report 4685230-6 (Version None)
Quarter: 2005Q2

REPORT INFORMATION
  Report Type: 
  Country: None (occurrence: None)
  Receive Date: 20050607
  Receipt Date: 20050602
  Transmission Date: 20051028
  Serious: Yes (Hospitalization)
  Sender: FDA-Public Use
  Company Number: 05-06-0970

PATIENT
  Age: 61 Year
  Sex: Male

DRUGS (5)
  1. ALBUTEROL SULFATE [Suspect]
     Dosage: 100 MCG
  2. MICARDIS [Suspect]
     Dosage: 80 MG
     Dates: start: 20010815
  3. SIMVASTATIN [Suspect]
     Dosage: 40 MG
  4. BECLOMETHASONE DIPROPIONATE [Suspect]
     Dosage: 250 MCG
  5. SALMETEROL [Suspect]
     Dosage: 25 MCG

REACTIONS (1)
  - MYOCARDIAL INFARCTION [None]
